FAERS Safety Report 8784950 (Version 1)
Quarter: 2012Q4

REPORT INFORMATION
  Report Type: Spontaneous
  Country: US (occurrence: None)
  Receive Date: 20120829
  Receipt Date: 20120829
  Transmission Date: 20130627
  Serious: Yes (Other)
  Sender: FDA-Public Use
  Company Number: DSA_57537_2012

PATIENT
  Sex: Female

DRUGS (9)
  1. XENAZINE [Suspect]
     Indication: HUNTINGTON^S DISEASE
     Dates: start: 201201
  2. ABILIFY [Concomitant]
  3. METOPROLOL [Concomitant]
  4. CITALOPRAM [Concomitant]
  5. SEROQUEL XR [Concomitant]
  6. METFORMIN [Concomitant]
  7. LISINOPRIL [Suspect]
  8. NITROGLYCERINE [Concomitant]
  9. RISPERDAL [Concomitant]

REACTIONS (4)
  - Agitation [None]
  - Restless legs syndrome [None]
  - Dementia [None]
  - Cognitive disorder [None]
